FAERS Safety Report 6346596-4 (Version None)
Quarter: 2009Q3

REPORT INFORMATION
  Report Type: 
  Country: None (occurrence: None)
  Receive Date: 20090909
  Receipt Date: 20090903
  Transmission Date: 20100115
  Serious: Yes (Other)
  Sender: FDA-Public Use
  Company Number: US-ASTRAZENECA-2009SE11260

PATIENT
  Sex: Male

DRUGS (2)
  1. SEROQUEL [Suspect]
     Indication: INSOMNIA
     Route: 048
  2. AMBIEN [Concomitant]
     Indication: SLEEP DISORDER THERAPY

REACTIONS (4)
  - DRUG DEPENDENCE [None]
  - INSOMNIA [None]
  - MOOD SWINGS [None]
  - WEIGHT INCREASED [None]
